FAERS Safety Report 22537688 (Version 1)
Quarter: 2023Q2

REPORT INFORMATION
  Report Type: Spontaneous
  Country: US (occurrence: US)
  Receive Date: 20230608
  Receipt Date: 20230608
  Transmission Date: 20230721
  Serious: No
  Sender: FDA-Public Use
  Company Number: US-PFIZER INC-202300213737

PATIENT
  Age: 76 Year
  Sex: Female
  Weight: 49.433 kg

DRUGS (2)
  1. IBRANCE [Suspect]
     Active Substance: PALBOCICLIB
     Indication: Malignant nervous system neoplasm
     Dosage: 100 MG, CYCLIC (ONCE A DAY; 3 WEEKS AND THEN YOU ARE OFF A WEEK YOU TAKE OFF ONE WEEK)
     Route: 048
     Dates: start: 20230515
  2. IBRANCE [Suspect]
     Active Substance: PALBOCICLIB
     Indication: Metastases to lung

REACTIONS (4)
  - Tinnitus [Not Recovered/Not Resolved]
  - Dizziness [Not Recovered/Not Resolved]
  - Feeling abnormal [Not Recovered/Not Resolved]
  - Off label use [Unknown]

NARRATIVE: CASE EVENT DATE: 20230515
